FAERS Safety Report 21822741 (Version 2)
Quarter: 2023Q1

REPORT INFORMATION
  Report Type: Spontaneous
  Country: US (occurrence: US)
  Receive Date: 20230105
  Receipt Date: 20230112
  Transmission Date: 20230418
  Serious: No
  Sender: FDA-Public Use
  Company Number: US-LUPIN PHARMACEUTICALS INC.-2022-14978

PATIENT

DRUGS (1)
  1. ALBUTEROL SULFATE [Suspect]
     Active Substance: ALBUTEROL SULFATE
     Indication: Dyspnoea
     Dosage: UNK, PRN (AS NEEDED, DEPENDS ON WHAT SHE WAS DOING)

REACTIONS (4)
  - Lung disorder [Unknown]
  - Device breakage [Unknown]
  - Drug dose omission by device [Unknown]
  - Device delivery system issue [Unknown]
